FAERS Safety Report 11717979 (Version 1)
Quarter: 2015Q4

REPORT INFORMATION
  Report Type: Spontaneous
  Country: None (occurrence: None)
  Receive Date: 20151109
  Receipt Date: 20151109
  Transmission Date: 20160304
  Serious: No
  Sender: FDA-Public Use
  Company Number: None

PATIENT
  Age: 60 Year
  Sex: Female
  Weight: 99.79 kg

DRUGS (1)
  1. INVOKANA [Suspect]
     Active Substance: CANAGLIFLOZIN
     Indication: TYPE 2 DIABETES MELLITUS
     Dosage: ONE TABLE BEFORE BREAKFAST
     Route: 048
     Dates: start: 20150102, end: 20151012

REACTIONS (6)
  - Genital discomfort [None]
  - Genital swelling [None]
  - Genital erythema [None]
  - Impaired work ability [None]
  - Genital pain [None]
  - Quality of life decreased [None]

NARRATIVE: CASE EVENT DATE: 20150102
